FAERS Safety Report 4602684-1 (Version None)
Quarter: 2005Q1

REPORT INFORMATION
  Report Type: 
  Country: None (occurrence: None)
  Receive Date: 20050307
  Receipt Date: 20050226
  Transmission Date: 20050727
  Serious: Yes (Hospitalization, Other)
  Sender: FDA-Public Use
  Company Number: 2005007563

PATIENT
  Age: 73 Year
  Sex: Male
  Weight: 134.7183 kg

DRUGS (6)
  1. LIPITOR [Suspect]
     Indication: BLOOD CHOLESTEROL INCREASED
     Dosage: 10 MG (10 MG, 1 IN  1 D), ORAL
     Route: 048
     Dates: start: 20010101
  2. ZYRTEC [Suspect]
     Indication: SINUS DISORDER
     Dosage: 10 MG (10 MG, DAILY INTERVAL:  EVERY DAY), ORAL
     Route: 048
     Dates: start: 20010101
  3. GLUCOTROL XL [Suspect]
     Indication: DIABETES MELLITUS
     Dosage: 20 MG (10 MG, BID INTERVAL:  EVERY DAY), ORAL
     Route: 048
     Dates: start: 19960101
  4. METFORMIN HCL [Concomitant]
  5. VALSARTAN (VALSARTAN) [Concomitant]
  6. ROSIGLITAZONE MALEATE [Concomitant]

REACTIONS (3)
  - ANAEMIA [None]
  - ASTHENIA [None]
  - BLOOD CHOLESTEROL INCREASED [None]
